FAERS Safety Report 23388250 (Version 1)
Quarter: 2024Q1

REPORT INFORMATION
  Report Type: Spontaneous
  Country: AU (occurrence: AU)
  Receive Date: 20240110
  Receipt Date: 20240110
  Transmission Date: 20240409
  Serious: Yes (Other)
  Sender: FDA-Public Use
  Company Number: AU-MYLANLABS-2024M1002699

PATIENT
  Age: 10 Year
  Sex: Female

DRUGS (3)
  1. SULFAMETHOXAZOLE\TRIMETHOPRIM [Suspect]
     Active Substance: SULFAMETHOXAZOLE\TRIMETHOPRIM
     Indication: Burkholderia pseudomallei infection
     Dosage: UNK
     Route: 048
  2. SULFAMETHOXAZOLE\TRIMETHOPRIM [Suspect]
     Active Substance: SULFAMETHOXAZOLE\TRIMETHOPRIM
     Dosage: UNK, CEASED FOR ONE WEEK WHEN SHE ATTENDED A SCOUT CAMP. ON HER RETURN, SHE WAS STARTED
     Route: 048
  3. DOXYCYCLINE [Suspect]
     Active Substance: DOXYCYCLINE
     Indication: Burkholderia pseudomallei infection
     Dosage: UNK
     Route: 048

REACTIONS (6)
  - Rash erythematous [Recovered/Resolved]
  - Neutropenia [Unknown]
  - Vomiting [Unknown]
  - Pruritus [Unknown]
  - Photosensitivity reaction [Unknown]
  - Off label use [Unknown]
